FAERS Safety Report 6986552-6 (Version None)
Quarter: 2010Q3

REPORT INFORMATION
  Report Type: 
  Country: None (occurrence: None)
  Receive Date: 20100915
  Receipt Date: 20090707
  Transmission Date: 20110219
  Serious: No
  Sender: FDA-Public Use
  Company Number: US-WYE-H10070609

PATIENT
  Age: 65 Year
  Sex: Female

DRUGS (4)
  1. PRISTIQ [Suspect]
     Indication: DEPRESSION
     Route: 048
     Dates: start: 20090616
  2. PRISTIQ [Suspect]
     Indication: ANXIETY
  3. SODIUM CHLORIDE [Concomitant]
  4. LORAZEPAM [Suspect]
     Indication: ANXIETY

REACTIONS (1)
  - SOMNOLENCE [None]
